FAERS Safety Report 14516649 (Version 1)
Quarter: 2018Q1

REPORT INFORMATION
  Report Type: Spontaneous
  Country: JP (occurrence: JP)
  Receive Date: 20180212
  Receipt Date: 20180212
  Transmission Date: 20180509
  Serious: Yes (Life-Threatening, Other)
  Sender: FDA-Public Use
  Company Number: JP-ACCORD-063319

PATIENT
  Age: 68 Year
  Sex: Female

DRUGS (4)
  1. ETOPOSIDE. [Suspect]
     Active Substance: ETOPOSIDE
     Indication: METASTASIS
     Dosage: DAY 5 TO 7 Q 4 WEEKS
  2. DOXORUBICIN [Suspect]
     Active Substance: DOXORUBICIN
     Indication: METASTASIS
     Dosage: 20 MG / M2 DAY 1, 8 Q 4 WEEKS
  3. MITOTANE [Suspect]
     Active Substance: MITOTANE
     Indication: METASTASIS
     Dosage: 1.5 G/D GRADUALLY INCREASED, MAINTAINED AT 7.5 G/D
     Route: 048
  4. CISPLATIN. [Suspect]
     Active Substance: CISPLATIN
     Indication: METASTASIS
     Dosage: 40 MG / M2 DAY 1, 9 Q4WEEKS

REACTIONS (3)
  - Hyponatraemia [Unknown]
  - Adrenal insufficiency [Unknown]
  - Febrile neutropenia [Unknown]
